FAERS Safety Report 20635046 (Version 3)
Quarter: 2022Q2

REPORT INFORMATION
  Report Type: Report from Study
  Country: US (occurrence: US)
  Receive Date: 20220325
  Receipt Date: 20220611
  Transmission Date: 20220721
  Serious: Yes (Hospitalization, Other)
  Sender: FDA-Public Use
  Company Number: US-NOVARTISPH-NVSC2022US064479

PATIENT
  Age: 49 Year
  Sex: Female

DRUGS (2)
  1. ENTRESTO [Suspect]
     Active Substance: SACUBITRIL\VALSARTAN
     Indication: Product used for unknown indication
     Dosage: 1 DOSAGE FORM, BID, (49/51 MG)
     Route: 065
     Dates: start: 2019
  2. AMIODARONE [Suspect]
     Active Substance: AMIODARONE
     Indication: Product used for unknown indication
     Dosage: UNK
     Route: 065
     Dates: start: 202005, end: 202005

REACTIONS (3)
  - COVID-19 [Unknown]
  - Mitral valve incompetence [Unknown]
  - Somnolence [Unknown]

NARRATIVE: CASE EVENT DATE: 20200501
